FAERS Safety Report 8958648 (Version 1)
Quarter: 2012Q4

REPORT INFORMATION
  Report Type: Spontaneous
  Country: GB (occurrence: None)
  Receive Date: 20121128
  Receipt Date: 20121128
  Transmission Date: 20130627
  Serious: Yes (Other)
  Sender: FDA-Public Use
  Company Number: 2012-01727

PATIENT
  Age: 74 Year
  Sex: Female

DRUGS (5)
  1. LISINOPRIL [Suspect]
     Indication: BLOOD PRESSURE HIGH
     Dosage: UNKNOWN (Unknown, UNK), Unknown
  2. SIMVASTATIN [Suspect]
     Dosage: 1 Dosage forms ( 1 dosage forms, 1 in 1 D) , Unknown
  3. ALLOPURINOL (UNKNOWN) [Suspect]
     Dosage: Unknown (Unknown, UNK), Unknown
  4. FRUSEMIDE [Suspect]
     Dosage: 1 Dosage forms (1 Dosage forms, 1 in 1 D), Unknown
  5. GLICLAZIDE [Suspect]
     Dosage: 1 Dosage forms (1 Dosage forms (1 Dosage forms, 1 in 1 D), Unknown

REACTIONS (3)
  - Face oedema [None]
  - Hot flush [None]
  - Malaise [None]
